FAERS Safety Report 21030543 (Version 1)
Quarter: 2022Q3

REPORT INFORMATION
  Report Type: Spontaneous
  Country: US (occurrence: None)
  Receive Date: 20220701
  Receipt Date: 20220701
  Transmission Date: 20221027
  Serious: No
  Sender: FDA-Public Use
  Company Number: US-ROCHE-2988098

PATIENT
  Age: 72 Year
  Sex: Female
  Weight: 60.836 kg

DRUGS (9)
  1. ACTEMRA [Suspect]
     Active Substance: TOCILIZUMAB
     Indication: Giant cell arteritis
     Dosage: STRENGTH: 162 MG/0.9 ML, EXPIRY DATE: AUG/2023
     Route: 058
     Dates: start: 202111
  2. ACTEMRA [Suspect]
     Active Substance: TOCILIZUMAB
  3. ACTEMRA [Suspect]
     Active Substance: TOCILIZUMAB
     Indication: Rheumatoid arthritis
     Dosage: STRENGTH: 162 MG/0.9 ML, EXPIRY DATE: AUG/2023
     Route: 058
     Dates: start: 202111
  4. ACTEMRA [Suspect]
     Active Substance: TOCILIZUMAB
  5. PREDNISONE [Concomitant]
     Active Substance: PREDNISONE
     Indication: Giant cell arteritis
     Dosage: HIGH DOSE ;ONGOING: NO
     Route: 048
     Dates: start: 202111
  6. PREDNISONE [Concomitant]
     Active Substance: PREDNISONE
     Dosage: 25 MG MORNING, 20 MG AT NIGHT ;ONGOING: NO
     Route: 048
     Dates: start: 202111
  7. PREDNISONE [Concomitant]
     Active Substance: PREDNISONE
     Dosage: YES
     Route: 048
  8. VITAMIN D3 [Concomitant]
     Active Substance: CHOLECALCIFEROL
     Dosage: YES
     Route: 048
  9. BIOTIN [Concomitant]
     Active Substance: BIOTIN
     Dosage: YES
     Route: 048

REACTIONS (10)
  - Exposure via skin contact [Unknown]
  - Device leakage [Unknown]
  - Product colour issue [Unknown]
  - Needle issue [Unknown]
  - No adverse event [Unknown]
  - Device physical property issue [Unknown]
  - Product leakage [Unknown]
  - Product quality issue [Unknown]
  - Device defective [Unknown]
  - Product dose omission issue [Unknown]

NARRATIVE: CASE EVENT DATE: 20211221
